FAERS Safety Report 8968235 (Version 1)
Quarter: 2012Q4

REPORT INFORMATION
  Report Type: Spontaneous
  Country: US (occurrence: None)
  Receive Date: 20121213
  Receipt Date: 20121213
  Transmission Date: 20130627
  Serious: Yes (Life-Threatening, Hospitalization)
  Sender: FDA-Public Use
  Company Number: None

PATIENT
  Age: 59 Year
  Sex: Male
  Weight: 80.9 kg

DRUGS (1)
  1. PEGLOTICASE [Suspect]
     Indication: GOUT
     Route: 042
     Dates: start: 20120322, end: 20120322

REACTIONS (6)
  - Presyncope [None]
  - Hypersensitivity [None]
  - Muscle spasms [None]
  - Feeling cold [None]
  - Cardio-respiratory arrest [None]
  - Infusion related reaction [None]
